FAERS Safety Report 13428912 (Version 2)
Quarter: 2017Q2

REPORT INFORMATION
  Report Type: Spontaneous
  Country: US (occurrence: US)
  Receive Date: 20170411
  Receipt Date: 20170421
  Transmission Date: 20170830
  Serious: Yes (Other)
  Sender: FDA-Public Use
  Company Number: US-SMITH AND NEPHEW, INC-2017SMT00192

PATIENT
  Age: 76 Year
  Sex: Female
  Weight: 96.15 kg

DRUGS (17)
  1. REGRANEX [Suspect]
     Active Substance: BECAPLERMIN
     Indication: WOUND
     Dosage: UNK, 1X/DAY FOR 12 HOURS ON AND 12 HOURS OFF
     Route: 061
     Dates: start: 201703, end: 201703
  2. DILTIAZEM. [Concomitant]
     Active Substance: DILTIAZEM
     Dosage: 80 MG, 1X/DAY
  3. FUROSEMIDE. [Concomitant]
     Active Substance: FUROSEMIDE
     Dosage: 80 MG, 3X/DAY
  4. GABAPENTIN. [Concomitant]
     Active Substance: GABAPENTIN
     Dosage: 600 MG, 3X/DAY
  5. GEMFIBROZIL. [Concomitant]
     Active Substance: GEMFIBROZIL
     Dosage: 600 MG, 2X/DAY
  6. CALCIUM [Concomitant]
     Active Substance: CALCIUM
  7. ASPIRIN. [Concomitant]
     Active Substance: ASPIRIN
     Dosage: 81 MG, 1X/DAY
  8. BENAZEPRIL [Concomitant]
     Active Substance: BENAZEPRIL HYDROCHLORIDE
     Dosage: 40 MG, 1X/DAY
  9. METOPROLOL. [Concomitant]
     Active Substance: METOPROLOL
     Dosage: 50 MG, 1X/DAY
  10. ALEVE [Concomitant]
     Active Substance: NAPROXEN SODIUM
     Dosage: 2 DOSAGE UNITS, 2X/DAY
  11. PRAVASTATIN. [Concomitant]
     Active Substance: PRAVASTATIN
     Dosage: 20 MG, 1X/DAY
  12. LANTUS [Concomitant]
     Active Substance: INSULIN GLARGINE
     Dosage: 55 U, 1X/DAY
  13. UNSPECIFIED MULTIVITAMIN [Concomitant]
  14. OMEPRAZOLE. [Concomitant]
     Active Substance: OMEPRAZOLE
     Dosage: 20 MG, 1X/DAY
  15. ALLOPURINOL. [Concomitant]
     Active Substance: ALLOPURINOL
     Dosage: 300 MG, 1X/DAY
  16. HUMALOG [Concomitant]
     Active Substance: INSULIN LISPRO
     Dosage: 10 U, 3X/DAY BEFORE MEALS
  17. POTASSIUM [Concomitant]
     Active Substance: POTASSIUM
     Dosage: 10 UNK, 1X/DAY

REACTIONS (9)
  - Cardiovascular insufficiency [Not Recovered/Not Resolved]
  - Burning sensation [Not Recovered/Not Resolved]
  - Wound complication [Recovering/Resolving]
  - Peripheral swelling [Not Recovered/Not Resolved]
  - Drug ineffective [Recovered/Resolved]
  - Cellulitis [Recovering/Resolving]
  - Erythema [Recovering/Resolving]
  - Rash [Recovering/Resolving]
  - Hypokinesia [Unknown]

NARRATIVE: CASE EVENT DATE: 201703
